FAERS Safety Report 13490478 (Version 4)
Quarter: 2017Q4

REPORT INFORMATION
  Report Type: Report from Study
  Country: US (occurrence: US)
  Receive Date: 20170427
  Receipt Date: 20171102
  Transmission Date: 20180320
  Serious: Yes (Other)
  Sender: FDA-Public Use
  Company Number: US-JAZZ-2017-US-004019

PATIENT
  Age: 49 Year
  Sex: Female

DRUGS (3)
  1. XYREM [Suspect]
     Active Substance: SODIUM OXYBATE
     Dosage: SECOND  DOSE (UNKNOWN)
     Route: 048
  2. XYREM [Suspect]
     Active Substance: SODIUM OXYBATE
     Dosage: 4.5 G, QD
     Route: 048
     Dates: start: 201704
  3. XYREM [Suspect]
     Active Substance: SODIUM OXYBATE
     Indication: NARCOLEPSY
     Dosage: 2.25 G, BID
     Route: 048
     Dates: start: 201703, end: 2017

REACTIONS (17)
  - Dysphagia [Unknown]
  - Atypical pneumonia [Not Recovered/Not Resolved]
  - Cataplexy [Unknown]
  - Somnolence [Unknown]
  - Diarrhoea [Unknown]
  - Pre-existing condition improved [Unknown]
  - Constipation [Unknown]
  - Dysarthria [Unknown]
  - Malaise [Not Recovered/Not Resolved]
  - Immune system disorder [Unknown]
  - Dizziness [Unknown]
  - Rheumatoid arthritis [Recovering/Resolving]
  - Cytomegalovirus infection [Unknown]
  - Ear pain [Unknown]
  - Abdominal pain upper [Unknown]
  - Candida infection [Unknown]
  - Headache [Not Recovered/Not Resolved]

NARRATIVE: CASE EVENT DATE: 2017
